FAERS Safety Report 19980890 (Version 5)
Quarter: 2025Q2

REPORT INFORMATION
  Report Type: Spontaneous
  Country: IN (occurrence: IN)
  Receive Date: 20211021
  Receipt Date: 20250513
  Transmission Date: 20250717
  Serious: Yes (Other)
  Sender: PFIZER
  Company Number: IN-PFIZER INC-2021666597

PATIENT
  Age: 77 Year
  Sex: Female

DRUGS (5)
  1. PALBOCICLIB [Suspect]
     Active Substance: PALBOCICLIB
     Indication: Breast cancer metastatic
     Route: 048
     Dates: start: 202104
  2. PALBOCICLIB [Suspect]
     Active Substance: PALBOCICLIB
     Route: 048
     Dates: start: 20210503
  3. FULVESTRANT [Concomitant]
     Active Substance: FULVESTRANT
     Dosage: 500 MG, MONTHLY
     Route: 030
     Dates: start: 202104
  4. OSTEOFOS [Concomitant]
     Dosage: 70 MG, WEEKLY FOR 3 MONTHS
  5. PREGABALIN [Concomitant]
     Active Substance: PREGABALIN
     Dosage: 75 MG, 2X/DAY (DAY AND NIGHT)
     Dates: end: 20250422

REACTIONS (9)
  - Nephrolithiasis [Unknown]
  - Metastases to spine [Unknown]
  - Metastases to lung [Unknown]
  - Neuropathy peripheral [Unknown]
  - Pain [Unknown]
  - Haemoglobin decreased [Unknown]
  - Mediastinal mass [Unknown]
  - Pulmonary mass [Unknown]
  - Vertebral column mass [Unknown]

NARRATIVE: CASE EVENT DATE: 20210911
